FAERS Safety Report 7395961-5 (Version None)
Quarter: 2011Q2

REPORT INFORMATION
  Report Type: 
  Country: None (occurrence: None)
  Receive Date: 20110406
  Receipt Date: 20110328
  Transmission Date: 20111010
  Serious: No
  Sender: FDA-Public Use
  Company Number: US-BIOGENIDEC-2011BI011497

PATIENT
  Sex: Male

DRUGS (1)
  1. AVONEX [Suspect]
     Indication: MULTIPLE SCLEROSIS
     Route: 030
     Dates: start: 20100409

REACTIONS (5)
  - GAIT DISTURBANCE [None]
  - INSOMNIA [None]
  - FEELING OF BODY TEMPERATURE CHANGE [None]
  - PAIN [None]
  - HYPOAESTHESIA [None]
